FAERS Safety Report 6365167-7 (Version None)
Quarter: 2009Q3

REPORT INFORMATION
  Report Type: 
  Country: None (occurrence: None)
  Receive Date: 20090919
  Receipt Date: 20090805
  Transmission Date: 20100115
  Serious: No
  Sender: FDA-Public Use
  Company Number: US-ABBOTT-09P-163-0589928-00

PATIENT
  Sex: Female
  Weight: 74.91 kg

DRUGS (10)
  1. HUMIRA [Suspect]
     Indication: RHEUMATOID ARTHRITIS
     Route: 058
     Dates: start: 20050101, end: 20090304
  2. METHOTREXATE [Concomitant]
     Indication: RHEUMATOID ARTHRITIS
     Route: 048
     Dates: end: 20090304
  3. METAMUCIL [Concomitant]
     Indication: MEDICAL DIET
  4. LEVOXYL [Concomitant]
     Indication: HYPOTHYROIDISM
     Dosage: ALT W/0.150
  5. LEVOXYL [Concomitant]
     Dosage: ALT W/0.125MG
     Route: 048
  6. XANAX [Concomitant]
     Indication: ANXIETY
     Route: 048
  7. PAXIL [Concomitant]
     Indication: DEPRESSION
     Route: 048
  8. AMITRIPTYLINE [Concomitant]
     Indication: FIBROMYALGIA
     Route: 048
  9. AMITRIPTYLINE [Concomitant]
     Indication: PAIN
  10. PREDNISONE [Concomitant]
     Indication: RHEUMATOID ARTHRITIS
     Route: 048

REACTIONS (4)
  - FREQUENT BOWEL MOVEMENTS [None]
  - HEPATIC ENZYME INCREASED [None]
  - HYPERCHLORHYDRIA [None]
  - VOMITING [None]
